FAERS Safety Report 16429836 (Version 3)
Quarter: 2019Q3

REPORT INFORMATION
  Report Type: Spontaneous
  Country: US (occurrence: US)
  Receive Date: 20190614
  Receipt Date: 20190712
  Transmission Date: 20191004
  Serious: Yes (Hospitalization, Other)
  Sender: FDA-Public Use
  Company Number: US-HORIZON-ACT-0172-2019

PATIENT
  Age: 3 Year
  Sex: Male

DRUGS (3)
  1. ITRACONAZOLE. [Concomitant]
     Active Substance: ITRACONAZOLE
  2. ACTIMMUNE [Suspect]
     Active Substance: INTERFERON GAMMA-1B
     Indication: CHRONIC GRANULOMATOUS DISEASE
     Dosage: 0.10 ML MWF
  3. BACTRIM [Concomitant]
     Active Substance: SULFAMETHOXAZOLE\TRIMETHOPRIM

REACTIONS (6)
  - Rash [Recovered/Resolved]
  - Fungal skin infection [Recovered/Resolved]
  - Lymphadenopathy [Recovered/Resolved]
  - Dermatitis diaper [Recovered/Resolved]
  - Staphylococcus test positive [Unknown]
  - Rash [Unknown]

NARRATIVE: CASE EVENT DATE: 20190618
